FAERS Safety Report 5056912-1 (Version None)
Quarter: 2006Q2

REPORT INFORMATION
  Report Type: 
  Country: None (occurrence: None)
  Receive Date: 20060622
  Receipt Date: 20051024
  Transmission Date: 20061013
  Serious: Yes (Hospitalization)
  Sender: FDA-Public Use
  Company Number: US-JNJFOC-20051005221

PATIENT
  Age: 65 Year
  Sex: Male
  Weight: 106.5953 kg

DRUGS (1)
  1. SANDOZ FENTANYL TRANSDERMAL SYSTEM (FENTANYL) PATCH [Suspect]
     Indication: PAIN
     Dosage: 25 UG/ HR, 1 IN 72 HOUR, TRANSDERMAL
     Route: 062
     Dates: start: 20051017, end: 20051022

REACTIONS (1)
  - PRURITUS GENERALISED [None]
